FAERS Safety Report 6438782-X (Version None)
Quarter: 2009Q4

REPORT INFORMATION
  Report Type: 
  Country: None (occurrence: None)
  Receive Date: 20091113
  Receipt Date: 20091102
  Transmission Date: 20100525
  Serious: No
  Sender: FDA-Public Use
  Company Number: US-JNJFOC-20091101422

PATIENT
  Sex: Female
  Weight: 113.4 kg

DRUGS (4)
  1. DURAGESIC-100 [Suspect]
     Indication: BACK PAIN
     Route: 062
     Dates: end: 20090101
  2. LYRICA [Concomitant]
     Indication: FIBROMYALGIA
     Dosage: 150 MG/2
     Route: 048
  3. INDERAL [Concomitant]
     Indication: MIGRAINE PROPHYLAXIS
     Route: 048
  4. SYNTHROID [Concomitant]
     Indication: THYROID DISORDER
     Route: 048

REACTIONS (1)
  - WRONG TECHNIQUE IN DRUG USAGE PROCESS [None]
